FAERS Safety Report 8434643-5 (Version None)
Quarter: 2012Q2

REPORT INFORMATION
  Report Type: 
  Country: None (occurrence: None)
  Receive Date: 20120614
  Receipt Date: 20120601
  Transmission Date: 20120825
  Serious: Yes (Other)
  Sender: FDA-Public Use
  Company Number: JP-ACCORD-013702

PATIENT
  Age: 78 Year
  Sex: Male

DRUGS (1)
  1. GEMCITABINE [Suspect]
     Dosage: GEM 1000MG/M2 ON DAY 1, DAY 8 AND DAY 15 PER COURSE OF 28 DAYS
     Dates: start: 20090601, end: 20100901

REACTIONS (4)
  - BILIARY TRACT INFECTION [None]
  - LEUKOPENIA [None]
  - THROMBOCYTOPENIA [None]
  - OFF LABEL USE [None]
